FAERS Safety Report 7492293-1 (Version None)
Quarter: 2011Q2

REPORT INFORMATION
  Report Type: 
  Country: None (occurrence: None)
  Receive Date: 20110519
  Receipt Date: 20101228
  Transmission Date: 20111010
  Serious: No
  Sender: FDA-Public Use
  Company Number: US-NOVEN-ALL1-2010-06623

PATIENT
  Sex: Female

DRUGS (2)
  1. DAYTRANA [Suspect]
     Indication: ATTENTION DEFICIT/HYPERACTIVITY DISORDER
     Dosage: 30 MG, 1X/DAY:QD
     Route: 062
  2. DAYTRANA [Suspect]
     Dosage: 20 MG, 1X/DAYQD
     Route: 062

REACTIONS (8)
  - DRUG INEFFECTIVE [None]
  - INCREASED APPETITE [None]
  - WEIGHT INCREASED [None]
  - PRODUCT QUALITY ISSUE [None]
  - VERBAL ABUSE [None]
  - DECREASED APPETITE [None]
  - OVERDOSE [None]
  - HEADACHE [None]
